FAERS Safety Report 20124588 (Version 1)
Quarter: 2021Q4

REPORT INFORMATION
  Report Type: Spontaneous
  Country: TW (occurrence: TW)
  Receive Date: 20211129
  Receipt Date: 20211129
  Transmission Date: 20220303
  Serious: Yes (Other)
  Sender: FDA-Public Use
  Company Number: TW-BAYER-2021A254552

PATIENT
  Age: 47 Year
  Sex: Female

DRUGS (4)
  1. MIRENA [Suspect]
     Active Substance: LEVONORGESTREL
     Indication: Adenomyosis
     Dosage: 20?G/DAY
     Route: 015
     Dates: start: 201806, end: 202005
  2. ERGONOVINE [ERGOMETRINE] [Concomitant]
     Dosage: UNK UNK, PRN
  3. DIENOGEST [Suspect]
     Active Substance: DIENOGEST
     Indication: Adenomyosis
     Dosage: UNK
     Route: 048
     Dates: start: 202005
  4. DIENOGEST [Suspect]
     Active Substance: DIENOGEST
     Indication: Adenomyosis
     Dosage: UNK
     Route: 048
     Dates: start: 2021

REACTIONS (10)
  - Genital haemorrhage [Recovered/Resolved]
  - Blood loss anaemia [Recovered/Resolved]
  - Heavy menstrual bleeding [Recovered/Resolved]
  - Device expulsion [Recovered/Resolved]
  - Weight increased [Recovered/Resolved]
  - Dysmenorrhoea [Recovered/Resolved]
  - Off label use of device [None]
  - Drug effective for unapproved indication [None]
  - Off label use [None]
  - Drug effective for unapproved indication [None]

NARRATIVE: CASE EVENT DATE: 20180601
